FAERS Safety Report 10133131 (Version 1)
Quarter: 2014Q2

REPORT INFORMATION
  Report Type: Spontaneous
  Country: US (occurrence: US)
  Receive Date: 20140428
  Receipt Date: 20140428
  Transmission Date: 20141212
  Serious: Yes (Hospitalization)
  Sender: FDA-Public Use
  Company Number: US-BRACCO-010574

PATIENT
  Age: 65 Year
  Sex: Female
  Weight: 75 kg

DRUGS (12)
  1. MONTELUKAST [Concomitant]
  2. ESCITALOPRAM OXALATE [Concomitant]
  3. HYDROCODONE [Concomitant]
  4. GLUCOSAMINE CHONDROITIN [Concomitant]
  5. PROHANCE [Suspect]
     Indication: NUCLEAR MAGNETIC RESONANCE IMAGING BREAST
     Route: 042
     Dates: start: 20140130, end: 20140130
  6. OMEPRAZOLE [Concomitant]
  7. LISINOPRIL [Concomitant]
  8. LOVASTATIN [Concomitant]
  9. METFORMIN [Concomitant]
  10. XANAX [Concomitant]
  11. GEMFIBROZIL [Concomitant]
  12. BIOTENE [Concomitant]

REACTIONS (1)
  - Anaphylactic reaction [Recovered/Resolved]
